FAERS Safety Report 23060665 (Version 1)
Quarter: 2023Q4

REPORT INFORMATION
  Report Type: Spontaneous
  Country: DE (occurrence: DE)
  Receive Date: 20231012
  Receipt Date: 20231012
  Transmission Date: 20240110
  Serious: Yes (Other)
  Sender: FDA-Public Use
  Company Number: DE-NORDICGR-053457

PATIENT
  Age: 29 Year
  Sex: Female

DRUGS (7)
  1. CYTOTEC [Suspect]
     Active Substance: MISOPROSTOL
     Indication: Abortion induced
     Dosage: 800 UG
     Route: 048
     Dates: start: 20230622
  2. CYTOTEC [Suspect]
     Active Substance: MISOPROSTOL
     Dosage: 800 UG
     Route: 048
     Dates: start: 20230702
  3. CYTOTEC [Suspect]
     Active Substance: MISOPROSTOL
     Dosage: 800 UG
     Route: 048
     Dates: start: 20230708
  4. MIFEPRISTONE [Suspect]
     Active Substance: MIFEPRISTONE
     Indication: Abortion induced
     Dosage: 200 MG
     Route: 048
     Dates: start: 20230620
  5. MIFEPRISTONE [Suspect]
     Active Substance: MIFEPRISTONE
     Dosage: 400 MG
     Route: 048
     Dates: start: 20230630
  6. MIFEPRISTONE [Suspect]
     Active Substance: MIFEPRISTONE
     Dosage: 600 MG
     Route: 048
     Dates: start: 20230706
  7. OXYTOCIN [Concomitant]
     Active Substance: OXYTOCIN
     Dosage: 3 IU TOTAL
     Route: 042
     Dates: start: 20230703

REACTIONS (5)
  - Uterine dilation and curettage [Recovered/Resolved]
  - Maternal exposure during pregnancy [Unknown]
  - Off label use [Unknown]
  - Drug ineffective for unapproved indication [Recovered/Resolved]
  - Incorrect dose administered [Unknown]

NARRATIVE: CASE EVENT DATE: 20230101
